FAERS Safety Report 4781800-5 (Version None)
Quarter: 2005Q3

REPORT INFORMATION
  Report Type: 
  Country: None (occurrence: None)
  Receive Date: 20050927
  Receipt Date: 20050914
  Transmission Date: 20060218
  Serious: Yes (Other)
  Sender: FDA-Public Use
  Company Number: USA0509108162

PATIENT
  Age: 58 Year
  Sex: Female

DRUGS (5)
  1. CYMBALTA [Suspect]
     Indication: ANXIETY
     Dosage: 60 MG IN THE EVENING
     Dates: start: 20041101
  2. SYNTHROID [Concomitant]
  3. XANAX [Concomitant]
  4. HORMONES [Concomitant]
  5. ZETIA [Concomitant]

REACTIONS (7)
  - CRYING [None]
  - DEPRESSION [None]
  - DIFFICULTY IN WALKING [None]
  - INSOMNIA [None]
  - MALIGNANT MELANOMA [None]
  - RECURRENT CANCER [None]
  - VOMITING [None]
